FAERS Safety Report 5980816-0 (Version None)
Quarter: 2008Q4

REPORT INFORMATION
  Report Type: 
  Country: None (occurrence: None)
  Receive Date: 20081205
  Receipt Date: 20080514
  Transmission Date: 20090506
  Serious: No
  Sender: FDA-Public Use
  Company Number: A0727818A

PATIENT
  Age: 65 Year
  Sex: Female

DRUGS (2)
  1. COMMIT [Suspect]
  2. NICORETTE [Suspect]

REACTIONS (3)
  - APHTHOUS STOMATITIS [None]
  - FLATULENCE [None]
  - INTENTIONAL DRUG MISUSE [None]
